FAERS Safety Report 9594355 (Version 1)
Quarter: 2013Q4

REPORT INFORMATION
  Report Type: Spontaneous
  Country: FR (occurrence: FR)
  Receive Date: 20131004
  Receipt Date: 20131004
  Transmission Date: 20140711
  Serious: Yes (Hospitalization, Other)
  Sender: FDA-Public Use
  Company Number: FR-ASTRAZENECA-2013SE72523

PATIENT
  Age: 296 Month
  Sex: Male
  Weight: 65 kg

DRUGS (2)
  1. MERONEM [Suspect]
     Indication: CYSTIC FIBROSIS
     Dosage: 80 G IN 24 HOURS
     Route: 042
     Dates: start: 201104, end: 201104
  2. NEBCINE [Concomitant]
     Indication: CYSTIC FIBROSIS

REACTIONS (2)
  - Overdose [Recovered/Resolved]
  - Renal failure acute [Recovered/Resolved]
